FAERS Safety Report 5207595-9 (Version None)
Quarter: 2007Q1

REPORT INFORMATION
  Report Type: 
  Country: None (occurrence: None)
  Receive Date: 20070112
  Receipt Date: 20070108
  Transmission Date: 20070707
  Serious: Yes (Hospitalization)
  Sender: FDA-Public Use
  Company Number: FR-PFIZER INC-2007002910

PATIENT
  Age: 74 Year
  Sex: Male

DRUGS (20)
  1. SOLU-MEDROL [Suspect]
     Dates: start: 20061107, end: 20061108
  2. FOSPHENYTOIN SODIUM [Suspect]
     Indication: CONVULSION
     Dates: start: 20061106, end: 20061106
  3. VALPROATE SODIUM [Suspect]
     Indication: CONVULSION
     Dates: start: 20061107, end: 20061108
  4. CLONAZEPAM [Suspect]
     Indication: CONVULSION
     Dates: start: 20061106, end: 20061106
  5. AMOXICILLIN [Suspect]
     Dates: start: 20061106, end: 20061108
  6. NICARDIPINE HYDROCHLORIDE [Suspect]
     Indication: HYPERTENSION
     Route: 042
     Dates: start: 20061106, end: 20061107
  7. CANDESARTAN CILEXETIL [Concomitant]
  8. CLOPIDOGREL [Concomitant]
  9. TRAMADOL HCL [Concomitant]
  10. BISOPROLOL FUMARATE [Concomitant]
  11. ZOLPIDEM TARTRATE [Concomitant]
  12. ATRACURIUM BESYLATE [Concomitant]
  13. THIOPENTAL SODIUM [Concomitant]
  14. FENTANYL CITRATE [Concomitant]
  15. MIDAZOLAM HYDROCHLORIDE [Concomitant]
  16. INSULIN [Concomitant]
  17. RAMIPRIL [Concomitant]
  18. IPRATROPIUM BROMIDE [Concomitant]
  19. TERBUTALINE SULFATE [Concomitant]
  20. ACETAMINOPHEN [Concomitant]
     Dates: start: 20061106, end: 20061108

REACTIONS (3)
  - RASH ERYTHEMATOUS [None]
  - RASH PUSTULAR [None]
  - WHITE BLOOD CELL DISORDER [None]
